FAERS Safety Report 10017341 (Version 1)
Quarter: 2014Q1

REPORT INFORMATION
  Report Type: Spontaneous
  Country: US (occurrence: None)
  Receive Date: 20140313
  Receipt Date: 20140313
  Transmission Date: 20141002
  Serious: Yes (Life-Threatening, Hospitalization)
  Sender: FDA-Public Use
  Company Number: None

PATIENT
  Age: 53 Year
  Sex: Female
  Weight: 54.43 kg

DRUGS (1)
  1. CHLORZOXAZONE 500 MG WATSON [Suspect]
     Indication: NEURALGIA
     Dosage: 1 PILL THREE TIMES DAILY
     Route: 048
     Dates: start: 20130401, end: 20131028

REACTIONS (3)
  - Dizziness [None]
  - Drug-induced liver injury [None]
  - Liver transplant [None]
